FAERS Safety Report 22299895 (Version 1)
Quarter: 2023Q2

REPORT INFORMATION
  Report Type: Spontaneous
  Country: US (occurrence: None)
  Receive Date: 20230509
  Receipt Date: 20230509
  Transmission Date: 20230721
  Serious: No
  Sender: FDA-Public Use
  Company Number: None

PATIENT

DRUGS (2)
  1. PRIMIDONE [Suspect]
     Active Substance: PRIMIDONE
  2. PHENAZOPYRIDINE HYDROCHLORIDE [Suspect]
     Active Substance: PHENAZOPYRIDINE HYDROCHLORIDE

REACTIONS (4)
  - Product prescribing error [None]
  - Product dispensing error [None]
  - Wrong product administered [None]
  - Feeling abnormal [None]
